FAERS Safety Report 23215504 (Version 1)
Quarter: 2023Q4

REPORT INFORMATION
  Report Type: Other
  Country: CN (occurrence: CN)
  Receive Date: 20231122
  Receipt Date: 20231122
  Transmission Date: 20240110
  Serious: Yes (Hospitalization, Disabling, Other)
  Sender: FDA-Public Use
  Company Number: CN-DEXPHARM-20232850

PATIENT
  Age: 49 Year
  Sex: Female

DRUGS (13)
  1. DEXAMETHASONE [Interacting]
     Active Substance: DEXAMETHASONE
     Indication: Immunosuppressant drug therapy
  2. DEXAMETHASONE [Interacting]
     Active Substance: DEXAMETHASONE
     Indication: Immunosuppressant drug therapy
     Dosage: INTRAVENOUS DEXAMETHASONE (20 MG/DAY) WAS ADMINISTERED ON DAY 195.
     Route: 050
  3. CYCLOPHOSPHAMIDE [Interacting]
     Active Substance: CYCLOPHOSPHAMIDE
     Indication: Immunosuppressant drug therapy
  4. VINCRISTINE [Interacting]
     Active Substance: VINCRISTINE
     Indication: Immunosuppressant drug therapy
  5. METHOTREXATE [Interacting]
     Active Substance: METHOTREXATE
     Indication: Immunosuppressant drug therapy
  6. AMPHOTERICIN B DEOXYCHOLATE [Concomitant]
     Active Substance: AMPHOTERICIN B DEOXYCHOLATE
     Indication: Meningitis cryptococcal
     Dosage: CM WAS DIAGNOSED AND TREATED WITH AMPHOTERICIN B DEOXYCHOLATE (AMBD) AND 5- FLUCYTOSINE (5-FC) FO...
  7. 5- flucytosine (5-FC) [Concomitant]
     Indication: Meningitis cryptococcal
     Dosage: CM WAS DIAGNOSED AND TREATED WITH AMPHOTERICIN B DEOXYCHOLATE (AMBD) AND 5- FLUCYTOSINE (5-FC) FO...
  8. VORICONAZOLE [Concomitant]
     Active Substance: VORICONAZOLE
     Dosage: ORAL VORICONAZOLE (VCZ; 200 MG TWICE/DAY) AND 5-FC ON DAY 45
  9. VORICONAZOLE [Concomitant]
     Active Substance: VORICONAZOLE
     Dosage: SHE WAS SUBSEQUENTLY DISCHARGED WITH VCZ (300 MG TWICE/DAY)
  10. VORICONAZOLE [Concomitant]
     Active Substance: VORICONAZOLE
     Dosage: ON DAY 199, THE PATIENT WAS DISCHARGED WITH VCZ (200 MG TWICE/DAY)
  11. PREDNISONE [Suspect]
     Active Substance: PREDNISONE
     Indication: Immunosuppressant drug therapy
  12. PREDNISONE [Suspect]
     Active Substance: PREDNISONE
     Indication: Immunosuppressant drug therapy
  13. THALIDOMIDE [Concomitant]
     Active Substance: THALIDOMIDE
     Dosage: 50 MG OF THALIDOMIDE TWICE PER DAY WAS ADDED ON DAY 198.

REACTIONS (3)
  - Immune reconstitution inflammatory syndrome [Recovering/Resolving]
  - Meningitis cryptococcal [Recovering/Resolving]
  - Drug interaction [Recovering/Resolving]
